FAERS Safety Report 13576314 (Version 1)
Quarter: 2017Q2

REPORT INFORMATION
  Report Type: Spontaneous
  Country: US (occurrence: US)
  Receive Date: 20170524
  Receipt Date: 20170524
  Transmission Date: 20170830
  Serious: No
  Sender: FDA-Public Use
  Company Number: US-ASTRAZENECA-2017SE54595

PATIENT
  Age: 701 Month
  Sex: Female

DRUGS (5)
  1. BROVANNA [Concomitant]
     Indication: CHRONIC OBSTRUCTIVE PULMONARY DISEASE
     Route: 055
  2. ERYTHROCIN [Concomitant]
     Active Substance: ERYTHROMYCIN LACTOBIONATE
     Indication: LUNG DISORDER
     Route: 048
     Dates: start: 2017
  3. TUDORZA PRESSAIR [Suspect]
     Active Substance: ACLIDINIUM BROMIDE
     Indication: CHRONIC OBSTRUCTIVE PULMONARY DISEASE
     Route: 055
  4. BISOPROLOL [Concomitant]
     Active Substance: BISOPROLOL
     Indication: CARDIAC DISORDER
  5. BUDESONIDE. [Concomitant]
     Active Substance: BUDESONIDE
     Indication: CHRONIC OBSTRUCTIVE PULMONARY DISEASE
     Route: 055

REACTIONS (5)
  - Drug dose omission [Unknown]
  - Device failure [Unknown]
  - Renal failure [Unknown]
  - Chronic obstructive pulmonary disease [Unknown]
  - Intentional product misuse [Unknown]

NARRATIVE: CASE EVENT DATE: 201705
